FAERS Safety Report 12964243 (Version 1)
Quarter: 2016Q4

REPORT INFORMATION
  Report Type: Other
  Country: GB (occurrence: GB)
  Receive Date: 20161122
  Receipt Date: 20161122
  Transmission Date: 20170207
  Serious: Yes (Life-Threatening, Hospitalization)
  Sender: FDA-Public Use
  Company Number: GB-PERRIGO-16GB021942

PATIENT

DRUGS (2)
  1. IBUPROFEN. [Suspect]
     Active Substance: IBUPROFEN
     Indication: TOOTH EXTRACTION
     Dosage: UNK
     Route: 048
     Dates: start: 20161101, end: 20161101
  2. VENTOLIN [Concomitant]
     Active Substance: ALBUTEROL SULFATE
     Indication: ASTHMA
     Route: 055

REACTIONS (2)
  - Dyspnoea [Recovering/Resolving]
  - Wheezing [Recovering/Resolving]

NARRATIVE: CASE EVENT DATE: 20161101
